FAERS Safety Report 24333796 (Version 1)
Quarter: 2024Q3

REPORT INFORMATION
  Report Type: Spontaneous
  Country: US (occurrence: None)
  Receive Date: 20240918
  Receipt Date: 20240918
  Transmission Date: 20241016
  Serious: Yes (Disabling)
  Sender: Public
  Company Number: None

PATIENT
  Age: 82 Year
  Sex: Female
  Weight: 115.21 kg

DRUGS (14)
  1. ROSUVASTATIN [Suspect]
     Active Substance: ROSUVASTATIN\ROSUVASTATIN CALCIUM
     Dosage: FREQUENCY : ONCE;?OTHER ROUTE : PILL W/CUP OF WATER;?
     Route: 050
     Dates: start: 20240528, end: 20240822
  2. LOSARTAN [Suspect]
     Active Substance: LOSARTAN\LOSARTAN POTASSIUM
  3. OXYBUTYNIN [Suspect]
     Active Substance: OXYBUTYNIN\OXYBUTYNIN CHLORIDE
  4. OZEMPIC [Suspect]
     Active Substance: SEMAGLUTIDE
  5. METFORMIN [Concomitant]
     Active Substance: METFORMIN HYDROCHLORIDE
  6. ACTOS [Concomitant]
     Active Substance: PIOGLITAZONE HYDROCHLORIDE
  7. GLIPIZIDE [Concomitant]
     Active Substance: GLIPIZIDE
  8. LEVOTHYROXINE [Concomitant]
     Active Substance: LEVOTHYROXINE\LEVOTHYROXINE SODIUM
  9. GABAPENTIN [Concomitant]
     Active Substance: GABAPENTIN
  10. AMLODIPINE [Concomitant]
     Active Substance: AMLODIPINE BESYLATE
  11. GOLO [Concomitant]
  12. VITAMINS [Concomitant]
     Active Substance: VITAMINS
  13. MINERALS\VITAMINS [Concomitant]
     Active Substance: MINERALS\VITAMINS
  14. LECITHYN [Concomitant]

REACTIONS (7)
  - Abdominal pain upper [None]
  - Pain in extremity [None]
  - Lethargy [None]
  - Depressed level of consciousness [None]
  - Somnolence [None]
  - Glycosylated haemoglobin increased [None]
  - Gait disturbance [None]

NARRATIVE: CASE EVENT DATE: 20240601
